FAERS Safety Report 7639563-1 (Version None)
Quarter: 2011Q3

REPORT INFORMATION
  Report Type: 
  Country: None (occurrence: None)
  Receive Date: 20110722
  Receipt Date: 20110707
  Transmission Date: 20111222
  Serious: Yes (Hospitalization)
  Sender: FDA-Public Use
  Company Number: 976700

PATIENT
  Age: 79 Year
  Sex: Female

DRUGS (1)
  1. DOCETAXEL [Suspect]
     Indication: BREAST CANCER
     Dosage: 97.2 MG MILLIGRAM(S), INTRAVENOUS
     Route: 042
     Dates: start: 20110310, end: 20110327

REACTIONS (1)
  - PNEUMONIA [None]
